FAERS Safety Report 4968087-5 (Version None)
Quarter: 2006Q2

REPORT INFORMATION
  Report Type: 
  Country: None (occurrence: None)
  Receive Date: 20060405
  Receipt Date: 20031119
  Transmission Date: 20061013
  Serious: Yes (Death)
  Sender: FDA-Public Use
  Company Number: 2006-140387-NL

PATIENT
  Age: 61 Year
  Sex: Male

DRUGS (14)
  1. DANAPAROID SODIUM [Suspect]
     Indication: DISSEMINATED INTRAVASCULAR COAGULATION
     Dosage: SEE IMAGE
     Route: 042
     Dates: start: 20030624, end: 20030627
  2. DANAPAROID SODIUM [Suspect]
     Indication: DISSEMINATED INTRAVASCULAR COAGULATION
     Dosage: SEE IMAGE
     Route: 042
     Dates: start: 20030628, end: 20030628
  3. ULINASTATIN [Concomitant]
  4. SIVELESTAT [Concomitant]
  5. ANTITHROMBIN III [Concomitant]
  6. IMMUNE GLOBULIN INTRAVENOUS (HUMAN) [Concomitant]
  7. FLOMOXEF SODIUM [Concomitant]
  8. FAMOTIDINE [Concomitant]
  9. PROPOFOL [Concomitant]
  10. CALCIUM GLUCONATE [Concomitant]
  11. RED BLOOD CELLS [Concomitant]
  12. NORMAL HUMAN PLASMA [Concomitant]
  13. PLATELETS [Concomitant]
  14. PLASMANATE [Concomitant]

REACTIONS (3)
  - CONDITION AGGRAVATED [None]
  - HAEMORRHAGE [None]
  - MALIGNANT NEOPLASM PROGRESSION [None]
